FAERS Safety Report 9605603 (Version 3)
Quarter: 2013Q4

REPORT INFORMATION
  Report Type: Spontaneous
  Country: JP (occurrence: JP)
  Receive Date: 20131008
  Receipt Date: 20131029
  Transmission Date: 20140711
  Serious: Yes (Hospitalization)
  Sender: FDA-Public Use
  Company Number: JP-BAYER-2013-120267

PATIENT
  Age: 70 Year
  Sex: Male

DRUGS (2)
  1. BAYASPIRIN [Suspect]
     Route: 048
  2. PLETAL [Suspect]
     Dosage: UNK
     Route: 048

REACTIONS (7)
  - Brain contusion [None]
  - Headache [None]
  - Loss of consciousness [None]
  - Syncope [None]
  - Stress cardiomyopathy [None]
  - Restlessness [None]
  - Chest pain [None]
